FAERS Safety Report 6161114-1 (Version None)
Quarter: 2009Q2

REPORT INFORMATION
  Report Type: 
  Country: None (occurrence: None)
  Receive Date: 20090417
  Receipt Date: 20090417
  Transmission Date: 20091009
  Serious: No
  Sender: FDA-Public Use
  Company Number: None

PATIENT
  Sex: Female
  Weight: 78.0187 kg

DRUGS (1)
  1. FOSAMAX [Suspect]
     Indication: OSTEOPOROSIS PROPHYLAXIS
     Dosage: 70 MG 1 PER MONTH ORALLY
     Route: 048
     Dates: start: 20010101, end: 20070101

REACTIONS (3)
  - CALCINOSIS [None]
  - PALATAL DISORDER [None]
  - SKIN DISORDER [None]
